FAERS Safety Report 23659252 (Version 1)
Quarter: 2024Q1

REPORT INFORMATION
  Report Type: Spontaneous
  Country: IT (occurrence: IT)
  Receive Date: 20240321
  Receipt Date: 20240321
  Transmission Date: 20240410
  Serious: Yes (Death)
  Sender: FDA-Public Use
  Company Number: IT-ROCHE-3483169

PATIENT
  Age: 68 Year
  Sex: Male
  Weight: 75 kg

DRUGS (13)
  1. OXALIPLATIN [Suspect]
     Active Substance: OXALIPLATIN
     Indication: Diffuse large B-cell lymphoma
     Dosage: ROUTE OF ADMIN: UNKNOWN
     Dates: start: 20230809, end: 20230901
  2. BENDAMUSTINE [Suspect]
     Active Substance: BENDAMUSTINE
     Indication: Diffuse large B-cell lymphoma
     Dosage: ROUTE OF ADMIN: UNKNOWN
     Dates: end: 20231020
  3. DEXAMETHASONE [Suspect]
     Active Substance: DEXAMETHASONE
     Indication: Diffuse large B-cell lymphoma
     Dosage: ROA: UNKNOWN
     Dates: start: 20230809, end: 20230901
  4. PREDNISONE [Suspect]
     Active Substance: PREDNISONE
     Indication: Diffuse large B-cell lymphoma
     Dosage: ROA: UNKNOWN
     Dates: start: 20221222, end: 20230510
  5. CYCLOPHOSPHAMIDE [Suspect]
     Active Substance: CYCLOPHOSPHAMIDE
     Indication: Diffuse large B-cell lymphoma
     Dosage: ROA: UNKNOWN
     Dates: start: 20221222, end: 20230510
  6. YESCARTA [Suspect]
     Active Substance: AXICABTAGENE CILOLEUCEL
     Indication: Diffuse large B-cell lymphoma
     Dosage: ROA: UNKNOWN
     Dates: end: 20231219
  7. VINCRISTINE [Suspect]
     Active Substance: VINCRISTINE
     Indication: Diffuse large B-cell lymphoma
     Dosage: ROA: UNKNOWN
     Dates: start: 20221222, end: 20230510
  8. CYTARABINE [Suspect]
     Active Substance: CYTARABINE
     Indication: Diffuse large B-cell lymphoma
     Dosage: ROA: UNKNOWN
     Dates: start: 20230809, end: 20230901
  9. RITUXIMAB [Suspect]
     Active Substance: RITUXIMAB
     Indication: Diffuse large B-cell lymphoma
     Dosage: ROA: UNKNOWN
     Dates: end: 20231020
  10. RITUXIMAB [Suspect]
     Active Substance: RITUXIMAB
     Dosage: ROA: UNKNOWN
     Dates: start: 20230809, end: 20230901
  11. RITUXIMAB [Suspect]
     Active Substance: RITUXIMAB
     Dosage: ROA: UNKNOWN
     Dates: start: 20221222, end: 20230510
  12. DOXORUBICIN [Suspect]
     Active Substance: DOXORUBICIN
     Indication: Diffuse large B-cell lymphoma
     Dosage: ROA: UNKNOWN
     Dates: start: 20221222, end: 20230510
  13. POLIVY [Suspect]
     Active Substance: POLATUZUMAB VEDOTIN-PIIQ
     Indication: Diffuse large B-cell lymphoma
     Dosage: ROA: UNKNOWN
     Dates: end: 20231020

REACTIONS (2)
  - COVID-19 [Fatal]
  - Off label use [Unknown]

NARRATIVE: CASE EVENT DATE: 20230809
